FAERS Safety Report 22315934 (Version 2)
Quarter: 2023Q2

REPORT INFORMATION
  Report Type: Spontaneous
  Country: FR (occurrence: FR)
  Receive Date: 20230512
  Receipt Date: 20230601
  Transmission Date: 20230722
  Serious: Yes (Life-Threatening, Hospitalization)
  Sender: FDA-Public Use
  Company Number: FR-BAUSCH-BL-2023-006983

PATIENT
  Age: 53 Year
  Sex: Female

DRUGS (4)
  1. VENLAFAXINE [Suspect]
     Active Substance: VENLAFAXINE HYDROCHLORIDE
     Indication: Product used for unknown indication
     Dosage: INGESTED 20 H BEFORE EXAMINATION
     Route: 048
  2. OXAZEPAM [Suspect]
     Active Substance: OXAZEPAM
     Indication: Product used for unknown indication
     Dosage: INGESTED 20 H BEFORE EXAMINATION
     Route: 048
  3. ACETAMINOPHEN [Concomitant]
     Active Substance: ACETAMINOPHEN
     Indication: Product used for unknown indication
  4. NORDAZEPAM [Concomitant]
     Active Substance: NORDAZEPAM
     Indication: Product used for unknown indication

REACTIONS (2)
  - Toxicity to various agents [Recovered/Resolved]
  - Cardiogenic shock [Recovered/Resolved]
